FAERS Safety Report 10688249 (Version 1)
Quarter: 2015Q1

REPORT INFORMATION
  Report Type: Spontaneous
  Country: FR (occurrence: FR)
  Receive Date: 20150102
  Receipt Date: 20150102
  Transmission Date: 20150720
  Serious: Yes (Hospitalization)
  Sender: FDA-Public Use
  Company Number: FR-PFIZER INC-2014358391

PATIENT
  Age: 72 Year
  Sex: Male

DRUGS (9)
  1. ALDACTONE [Suspect]
     Active Substance: SPIRONOLACTONE
     Indication: ASCITES
     Dosage: 100 MG, 1X/DAY
     Route: 048
     Dates: end: 20141027
  2. PARKINANE [Concomitant]
     Active Substance: TRIHEXYPHENIDYL HYDROCHLORIDE
     Dosage: 5 MG, 1X/DAY
  3. PRINCI-B [Concomitant]
     Dosage: 6 DF, DAILY
  4. LASILIX [Interacting]
     Active Substance: FUROSEMIDE
     Indication: ASCITES
     Dosage: 20 MG, 1X/DAY
     Route: 048
     Dates: end: 20141027
  5. HALDOL [Concomitant]
     Active Substance: HALOPERIDOL
     Dosage: 5 MG, 1X/DAY
  6. BACTRIM [Concomitant]
     Active Substance: SULFAMETHOXAZOLE\TRIMETHOPRIM
     Dosage: 2 DF, DAILY
  7. INEXIUM /01479302/ [Concomitant]
     Active Substance: ESOMEPRAZOLE MAGNESIUM
     Dosage: 40 MG, 1X/DAY
  8. PROPRANOLOL [Concomitant]
     Active Substance: PROPRANOLOL\PROPRANOLOL HYDROCHLORIDE
     Dosage: 160 MG, 1X/DAY
  9. THERALENE [Concomitant]
     Active Substance: TRIMEPRAZINE
     Dosage: 5 MG, 1X/DAY

REACTIONS (4)
  - Hypotension [Recovered/Resolved]
  - Prerenal failure [Recovered/Resolved]
  - Drug interaction [Recovered/Resolved]
  - Dehydration [Recovered/Resolved]

NARRATIVE: CASE EVENT DATE: 20141027
